FAERS Safety Report 6160463-0 (Version None)
Quarter: 2009Q2

REPORT INFORMATION
  Report Type: 
  Country: None (occurrence: None)
  Receive Date: 20090420
  Receipt Date: 20090413
  Transmission Date: 20091009
  Serious: Yes (Life-Threatening, Hospitalization)
  Sender: FDA-Public Use
  Company Number: US-JNJFOC-20090403142

PATIENT
  Age: 49 Year
  Sex: Male

DRUGS (10)
  1. ULTRAM [Suspect]
     Indication: DRUG USE FOR UNKNOWN INDICATION
     Route: 048
  2. ALPHA BLOCKER [Suspect]
     Indication: DRUG USE FOR UNKNOWN INDICATION
     Route: 065
  3. BETA BLOCKER [Suspect]
     Indication: DRUG USE FOR UNKNOWN INDICATION
     Route: 065
  4. ACETAMINOPHEN [Suspect]
     Route: 065
  5. ACETAMINOPHEN [Suspect]
     Indication: DRUG USE FOR UNKNOWN INDICATION
     Route: 065
  6. TIAZIDE [Concomitant]
  7. ANTICHOLINERGIC [Concomitant]
  8. ANTIBIOTICS [Concomitant]
  9. COX 2 INHIBITOR [Concomitant]
  10. ANTIPLATELET [Concomitant]

REACTIONS (4)
  - HYPOTENSION [None]
  - HYPOTHERMIA [None]
  - MULTIPLE DRUG OVERDOSE [None]
  - UNRESPONSIVE TO STIMULI [None]
